FAERS Safety Report 20877557 (Version 2)
Quarter: 2022Q2

REPORT INFORMATION
  Report Type: Spontaneous
  Country: US (occurrence: US)
  Receive Date: 20220526
  Receipt Date: 20220615
  Transmission Date: 20220721
  Serious: No
  Sender: FDA-Public Use
  Company Number: US-PFIZER INC-202200742988

PATIENT
  Age: 68 Year
  Sex: Female
  Weight: 92.971 kg

DRUGS (9)
  1. PAXLOVID [Suspect]
     Active Substance: NIRMATRELVIR\RITONAVIR
     Indication: COVID-19 treatment
     Dosage: PF-07321332 300 MG/RITONAVIR 100 MG, TWICE A DAY
     Dates: start: 20220506, end: 20220510
  2. LOSARTAN [Concomitant]
     Active Substance: LOSARTAN
     Dosage: UNK, DAILY FOR MANY YEARS
  3. AMLODIPINE [Concomitant]
     Active Substance: AMLODIPINE BESYLATE
     Dosage: UNK, DAILY FOR MANY YEARS
  4. BUPROPION [Concomitant]
     Active Substance: BUPROPION
     Dosage: UNK, DAILY FOR MANY YEARS
  5. ATENOLOL [Concomitant]
     Active Substance: ATENOLOL
     Dosage: UNK, DAILY FOR MANY YEARS
  6. VENLAFAXINE [Concomitant]
     Active Substance: VENLAFAXINE HYDROCHLORIDE
     Dosage: UNK, DAILY FOR MANY YEARS
  7. QVAR [Concomitant]
     Active Substance: BECLOMETHASONE DIPROPIONATE
     Dosage: UNK
  8. ZYRTEC [Concomitant]
     Active Substance: CETIRIZINE HYDROCHLORIDE
     Dosage: UNK
  9. VITAMIN D NOS [Concomitant]
     Active Substance: VITAMIN D NOS
     Dosage: UNK

REACTIONS (2)
  - COVID-19 [Recovered/Resolved]
  - Disease recurrence [Recovered/Resolved]

NARRATIVE: CASE EVENT DATE: 20220514
